FAERS Safety Report 5930643-5 (Version None)
Quarter: 2008Q4

REPORT INFORMATION
  Report Type: 
  Country: None (occurrence: None)
  Receive Date: 20081027
  Receipt Date: 20081021
  Transmission Date: 20090506
  Serious: Yes (Life-Threatening)
  Sender: FDA-Public Use
  Company Number: US-JNJFOC-20081004930

PATIENT
  Age: 36 Year
  Sex: Male

DRUGS (6)
  1. ULTRAM [Suspect]
     Indication: DRUG USE FOR UNKNOWN INDICATION
  2. NSAID [Suspect]
     Indication: DRUG USE FOR UNKNOWN INDICATION
  3. BACLOFEN [Suspect]
     Indication: DRUG USE FOR UNKNOWN INDICATION
  4. BENZODIAZEPINE [Suspect]
     Indication: DRUG USE FOR UNKNOWN INDICATION
  5. HYDROCODONE APAP [Concomitant]
  6. DULOXETINE [Concomitant]

REACTIONS (4)
  - ASPIRATION [None]
  - OVERDOSE [None]
  - RESPIRATORY DEPRESSION [None]
  - UNRESPONSIVE TO STIMULI [None]
